FAERS Safety Report 8541279-4 (Version None)
Quarter: 2012Q3

REPORT INFORMATION
  Report Type: 
  Country: None (occurrence: None)
  Receive Date: 20120716
  Receipt Date: 20120702
  Transmission Date: 20120928
  Serious: Yes (Death, Hospitalization)
  Sender: FDA-Public Use
  Company Number: UTC-019359

PATIENT
  Age: 80 Year
  Sex: Female
  Weight: 65.9 kg

DRUGS (3)
  1. TYVASO [Suspect]
     Indication: PULMONARY ARTERIAL HYPERTENSION
     Dosage: 18-54 MCGS (4 IN 1 D), INHALATION
     Route: 055
     Dates: start: 20110831
  2. LETAIRIS [Concomitant]
  3. ADCIRCA [Concomitant]

REACTIONS (1)
  - DEATH [None]
